FAERS Safety Report 9953814 (Version 2)
Quarter: 2014Q1

REPORT INFORMATION
  Report Type: Spontaneous
  Country: US (occurrence: US)
  Receive Date: 20140304
  Receipt Date: 20140304
  Transmission Date: 20141002
  Serious: No
  Sender: FDA-Public Use
  Company Number: US-AMGEN-USASP2013070780

PATIENT
  Age: 37 Year
  Sex: Male

DRUGS (2)
  1. ENBREL [Suspect]
     Indication: PSORIATIC ARTHROPATHY
     Dosage: 50 MG, QWK
     Route: 058
     Dates: start: 20130712, end: 201309
  2. ENBREL [Suspect]
     Indication: PSORIASIS

REACTIONS (3)
  - Fluid retention [Recovered/Resolved]
  - Local swelling [Recovered/Resolved]
  - Weight increased [Recovered/Resolved]
